FAERS Safety Report 5054436-9 (Version None)
Quarter: 2006Q2

REPORT INFORMATION
  Report Type: 
  Country: None (occurrence: None)
  Receive Date: 20060616
  Receipt Date: 20060520
  Transmission Date: 20061013
  Serious: Yes (Hospitalization)
  Sender: FDA-Public Use
  Company Number: 220011

PATIENT
  Age: 61 Year
  Sex: Male
  Weight: 81.2 kg

DRUGS (7)
  1. AVASTIN [Suspect]
     Indication: COLON CANCER
     Dosage: 5 MG/KG , Q2W, INTRAVENOUS
     Route: 042
     Dates: start: 20051008, end: 20051026
  2. OXALIPLATIN [Concomitant]
  3. FLUOROURACIL [Concomitant]
  4. LEUCOVORIN CALCIUM [Concomitant]
  5. DILANTIN [Concomitant]
  6. ZOFRAN [Concomitant]
  7. OXYCODONE HCL [Concomitant]

REACTIONS (1)
  - PULMONARY EMBOLISM [None]
